FAERS Safety Report 23781769 (Version 1)
Quarter: 2024Q2

REPORT INFORMATION
  Report Type: Spontaneous
  Country: US (occurrence: US)
  Receive Date: 20240425
  Receipt Date: 20240425
  Transmission Date: 20240716
  Serious: Yes (Other)
  Sender: FDA-Public Use
  Company Number: US-CADILA HEALTHCARE LIMITED-US-ZYDUS-105882

PATIENT

DRUGS (1)
  1. TRANEXAMIC ACID [Suspect]
     Active Substance: TRANEXAMIC ACID
     Indication: Prophylaxis
     Dosage: 1 GRAM DILUTED INTO 30 MILLILITRE OF NORMAL SALINE FOR A CONCENTRATION OF 25 MILLIGRAM PER MILLILITR
     Route: 061

REACTIONS (2)
  - Contusion [Recovering/Resolving]
  - Impaired healing [Recovered/Resolved]
